FAERS Safety Report 21416071 (Version 3)
Quarter: 2023Q1

REPORT INFORMATION
  Report Type: Other
  Country: DE (occurrence: None)
  Receive Date: 20221006
  Receipt Date: 20230209
  Transmission Date: 20230418
  Serious: Yes (Hospitalization, Other)
  Sender: FDA-Public Use
  Company Number: DE-ROCHE-2245571

PATIENT
  Age: 55 Year
  Sex: Female

DRUGS (22)
  1. OCREVUS [Suspect]
     Active Substance: OCRELIZUMAB
     Indication: Primary progressive multiple sclerosis
     Route: 042
     Dates: start: 20190109
  2. OCREVUS [Suspect]
     Active Substance: OCRELIZUMAB
     Indication: Secondary progressive multiple sclerosis
     Route: 042
     Dates: start: 20190123
  3. OCREVUS [Suspect]
     Active Substance: OCRELIZUMAB
     Dosage: MAINTENANCE DOSE
     Route: 042
     Dates: start: 20190717
  4. OCREVUS [Suspect]
     Active Substance: OCRELIZUMAB
     Route: 042
     Dates: start: 20200115
  5. OCREVUS [Suspect]
     Active Substance: OCRELIZUMAB
     Dosage: THEN 600 MG ONCE IN 168 DAYS; NEXT DOSE WAS ON 23/JUN/2021
     Route: 042
     Dates: start: 20210106
  6. OCREVUS [Suspect]
     Active Substance: OCRELIZUMAB
     Route: 042
     Dates: start: 20210623
  7. CORTISONE [Suspect]
     Active Substance: CORTISONE
     Indication: Premedication
     Route: 065
  8. SODIUM CHLORIDE [Suspect]
     Active Substance: SODIUM CHLORIDE
     Indication: Product used for unknown indication
     Route: 065
     Dates: start: 20190109
  9. COMIRNATY [Suspect]
     Active Substance: TOZINAMERAN
     Indication: COVID-19 prophylaxis
     Route: 065
     Dates: start: 20210404
  10. COMIRNATY [Suspect]
     Active Substance: TOZINAMERAN
     Route: 065
     Dates: start: 20210518
  11. COMIRNATY [Suspect]
     Active Substance: TOZINAMERAN
     Dosage: 2ND VACCINE
     Route: 065
     Dates: start: 20210520, end: 20210520
  12. COMIRNATY [Suspect]
     Active Substance: TOZINAMERAN
     Dosage: VACCINATION
     Route: 065
     Dates: start: 20210404
  13. COMIRNATY [Suspect]
     Active Substance: TOZINAMERAN
     Route: 065
     Dates: start: 20210518
  14. GABAPENTIN [Concomitant]
     Active Substance: GABAPENTIN
  15. METOPROLOL [Concomitant]
     Active Substance: METOPROLOL
  16. LEVOTHYROXINE SODIUM [Concomitant]
     Active Substance: LEVOTHYROXINE SODIUM
     Dosage: NEXT DOS E15 MCG
  17. LEVOTHYROXINE SODIUM [Concomitant]
     Active Substance: LEVOTHYROXINE SODIUM
  18. CANDESARTAN [Concomitant]
     Active Substance: CANDESARTAN
  19. CHOLECALCIFEROL [Concomitant]
     Active Substance: CHOLECALCIFEROL
  20. NABIXIMOLS [Concomitant]
     Active Substance: NABIXIMOLS
     Dosage: 4-5 HUBS PER DAY
  21. MORPHINE [Concomitant]
     Active Substance: MORPHINE
  22. HUMALOG [Concomitant]
     Active Substance: INSULIN LISPRO

REACTIONS (22)
  - Goitre [Recovered/Resolved]
  - Multiple sclerosis relapse [Recovered/Resolved]
  - Fatigue [Recovered/Resolved]
  - Hypertension [Recovered/Resolved]
  - Palpitations [Recovered/Resolved]
  - Abdominal pain upper [Recovered/Resolved]
  - Back pain [Recovered/Resolved]
  - Cough [Recovered/Resolved]
  - Abdominal pain upper [Recovered/Resolved]
  - Steroid diabetes [Recovered/Resolved]
  - Arthralgia [Not Recovered/Not Resolved]
  - Blood glucose increased [Recovered/Resolved]
  - Headache [Recovered/Resolved]
  - Vaccination failure [Not Recovered/Not Resolved]
  - Fluid retention [Recovered/Resolved]
  - Mood swings [Recovered/Resolved]
  - Cardiovascular disorder [Unknown]
  - COVID-19 [Recovered/Resolved]
  - Rib fracture [Recovered/Resolved]
  - Dyspnoea [Recovered/Resolved]
  - Productive cough [Recovered/Resolved]
  - Cognitive disorder [Unknown]

NARRATIVE: CASE EVENT DATE: 20190109
